FAERS Safety Report 13906959 (Version 2)
Quarter: 2017Q3

REPORT INFORMATION
  Report Type: Report from Study
  Country: US (occurrence: BR)
  Receive Date: 20170825
  Receipt Date: 20170908
  Transmission Date: 20171127
  Serious: Yes (Hospitalization, Other)
  Sender: FDA-Public Use
  Company Number: US-SUNOVION-2017SUN003768

PATIENT
  Age: 78 Year
  Sex: Female
  Weight: 58 kg

DRUGS (3)
  1. INDACATEROL AND GLYCOPYRROLATE [Suspect]
     Active Substance: GLYCOPYRROLATE\INDACATEROL MALEATE
     Indication: FATIGUE
  2. INDACATEROL AND GLYCOPYRROLATE [Suspect]
     Active Substance: GLYCOPYRROLATE\INDACATEROL MALEATE
     Indication: LUNG DISORDER
  3. INDACATEROL AND GLYCOPYRROLATE [Suspect]
     Active Substance: GLYCOPYRROLATE\INDACATEROL MALEATE
     Indication: DYSPNOEA
     Dosage: 1 DF (110/50), QD
     Route: 055

REACTIONS (9)
  - Peripheral swelling [Recovering/Resolving]
  - Pulmonary embolism [Unknown]
  - Fall [Unknown]
  - Femur fracture [Unknown]
  - Pneumonia [Not Recovered/Not Resolved]
  - Pelvic fracture [Unknown]
  - Cervical vertebral fracture [Unknown]
  - Product use in unapproved indication [Unknown]
  - Hypokinesia [Not Recovered/Not Resolved]

NARRATIVE: CASE EVENT DATE: 201602
